FAERS Safety Report 25839397 (Version 1)
Quarter: 2025Q3

REPORT INFORMATION
  Report Type: Spontaneous
  Country: US (occurrence: US)
  Receive Date: 20250924
  Receipt Date: 20250924
  Transmission Date: 20251020
  Serious: No
  Sender: LEO PHARM
  Company Number: US-LEO Pharma-382991

PATIENT
  Age: 31 Year
  Sex: Female

DRUGS (1)
  1. ADBRY [Suspect]
     Active Substance: TRALOKINUMAB-LDRM
     Indication: Dermatitis
     Dosage: TREATMENT ONGOING
     Route: 058
     Dates: start: 202508

REACTIONS (1)
  - Medical device discomfort [Unknown]
